FAERS Safety Report 14102932 (Version 1)
Quarter: 2017Q4

REPORT INFORMATION
  Report Type: Spontaneous
  Country: US (occurrence: US)
  Receive Date: 20171018
  Receipt Date: 20171018
  Transmission Date: 20180321
  Serious: Yes (Other)
  Sender: FDA-Public Use
  Company Number: US-GLAXOSMITHKLINE-US2017159133

PATIENT
  Age: 69 Year
  Sex: Female

DRUGS (12)
  1. IBUPROFEN. [Concomitant]
     Active Substance: IBUPROFEN
  2. MELOXICAM. [Concomitant]
     Active Substance: MELOXICAM
  3. KLONOPIN [Concomitant]
     Active Substance: CLONAZEPAM
  4. MOTRIN [Concomitant]
     Active Substance: IBUPROFEN
  5. ROSUVASTATIN. [Concomitant]
     Active Substance: ROSUVASTATIN
  6. BREO ELLIPTA [Suspect]
     Active Substance: FLUTICASONE FUROATE\VILANTEROL TRIFENATATE
     Indication: PULMONARY MASS
     Dosage: 1 PUFF(S), 1D
     Route: 055
     Dates: start: 20170113
  7. LYRICA [Suspect]
     Active Substance: PREGABALIN
     Indication: PAIN
     Dates: start: 2017
  8. LAMICTAL [Concomitant]
     Active Substance: LAMOTRIGINE
  9. ZOLOFT [Concomitant]
     Active Substance: SERTRALINE HYDROCHLORIDE
  10. FLONASE [Concomitant]
     Active Substance: FLUTICASONE PROPIONATE
  11. TOLTERODINE [Concomitant]
     Active Substance: TOLTERODINE
  12. VALSARTAN. [Concomitant]
     Active Substance: VALSARTAN

REACTIONS (11)
  - Arthritis [Unknown]
  - Fall [Unknown]
  - Road traffic accident [Unknown]
  - Dyspnoea [Not Recovered/Not Resolved]
  - Musculoskeletal pain [Unknown]
  - Suicidal ideation [Unknown]
  - Blood disorder [Unknown]
  - Pain in extremity [Unknown]
  - Back pain [Unknown]
  - Peripheral swelling [Unknown]
  - Product use in unapproved indication [Not Recovered/Not Resolved]

NARRATIVE: CASE EVENT DATE: 2017
